FAERS Safety Report 9492979 (Version 2)
Quarter: 2013Q3

REPORT INFORMATION
  Report Type: Spontaneous
  Country: US (occurrence: US)
  Receive Date: 20130902
  Receipt Date: 20130923
  Transmission Date: 20140515
  Serious: Yes (Death)
  Sender: FDA-Public Use
  Company Number: US-BIOGENIDEC-2013BI081679

PATIENT
  Age: 39 Year
  Sex: Female

DRUGS (5)
  1. TYSABRI [Suspect]
     Indication: MULTIPLE SCLEROSIS
     Route: 042
     Dates: start: 20130205, end: 20130701
  2. ARMIDEX [Concomitant]
  3. VIMPAT [Concomitant]
  4. ROPINIROLE [Concomitant]
  5. BACLOFEN [Concomitant]

REACTIONS (3)
  - Death [Fatal]
  - Gait disturbance [Unknown]
  - Fall [Unknown]
